FAERS Safety Report 18578584 (Version 1)
Quarter: 2020Q4

REPORT INFORMATION
  Report Type: Other
  Country: GB (occurrence: GB)
  Receive Date: 20201204
  Receipt Date: 20201204
  Transmission Date: 20210114
  Serious: Yes (Death, Hospitalization)
  Sender: FDA-Public Use
  Company Number: GB-EMCURE PHARMACEUTICALS LTD-2020-EPL-001990

PATIENT
  Age: 72 Year
  Sex: Male

DRUGS (1)
  1. ZOLEDRONIC ACID [Suspect]
     Active Substance: ZOLEDRONIC ACID
     Indication: OSTEOPOROSIS
     Dosage: 5 MILLIGRAM
     Route: 042
     Dates: start: 20180301, end: 20201104

REACTIONS (3)
  - Acute phase reaction [Fatal]
  - Cardiac arrest [Not Recovered/Not Resolved]
  - Circulatory collapse [Not Recovered/Not Resolved]

NARRATIVE: CASE EVENT DATE: 20180301
